FAERS Safety Report 25242612 (Version 1)
Quarter: 2025Q2

REPORT INFORMATION
  Report Type: Spontaneous
  Country: CN (occurrence: CN)
  Receive Date: 20250427
  Receipt Date: 20250427
  Transmission Date: 20250717
  Serious: Yes (Hospitalization)
  Sender: SANOFI AVENTIS
  Company Number: CN-SA-2025SA120160

PATIENT
  Age: 67 Year
  Sex: Male
  Weight: 62 kg

DRUGS (3)
  1. OXALIPLATIN [Suspect]
     Active Substance: OXALIPLATIN
     Indication: Rectal cancer
     Route: 041
     Dates: start: 20250227, end: 20250227
  2. CAPECITABINE [Suspect]
     Active Substance: CAPECITABINE
     Indication: Rectal cancer
     Dosage: 2.000G QD (2.0 G/1.5 G PO D1-14/Q21D*4 CYCLES)
     Route: 048
     Dates: start: 20250227, end: 20250313
  3. CAPECITABINE [Suspect]
     Active Substance: CAPECITABINE
     Dosage: 1.500G QD
     Route: 048
     Dates: start: 20250227, end: 20250313

REACTIONS (1)
  - Hepatic function abnormal [Recovering/Resolving]

NARRATIVE: CASE EVENT DATE: 20250319
